FAERS Safety Report 8543375 (Version 2)
Quarter: 2013Q4

REPORT INFORMATION
  Report Type: Spontaneous
  Country: TR (occurrence: TR)
  Receive Date: 20120503
  Receipt Date: 20131118
  Transmission Date: 20140711
  Serious: Yes (Hospitalization)
  Sender: FDA-Public Use
  Company Number: TR-AMGEN-TURSP2012026334

PATIENT
  Age: 10 Year
  Sex: Male

DRUGS (2)
  1. ENBREL [Suspect]
     Indication: JUVENILE IDIOPATHIC ARTHRITIS
     Dosage: 20 MG, WEEKLY (ON TUESDAYS)
     Route: 058
     Dates: start: 20111031
  2. ENBREL [Suspect]
     Dosage: 25 MG, QWK
     Route: 058

REACTIONS (2)
  - Brain injury [Recovered/Resolved]
  - Fear [Not Recovered/Not Resolved]
